FAERS Safety Report 16786195 (Version 2)
Quarter: 2019Q4

REPORT INFORMATION
  Report Type: Spontaneous
  Country: US (occurrence: US)
  Receive Date: 20190909
  Receipt Date: 20191105
  Transmission Date: 20200122
  Serious: Yes (Other)
  Sender: FDA-Public Use
  Company Number: US-PFIZER INC-2019384615

PATIENT
  Age: 44 Year
  Sex: Female
  Weight: 54.43 kg

DRUGS (4)
  1. LYRICA [Suspect]
     Active Substance: PREGABALIN
     Indication: NEUROPATHY PERIPHERAL
     Dosage: 200 MG, 3X/DAY
     Route: 048
     Dates: start: 2014
  2. LYRICA [Suspect]
     Active Substance: PREGABALIN
     Dosage: 200 MG, 3X/DAY
     Route: 048
     Dates: start: 2010
  3. LYRICA [Suspect]
     Active Substance: PREGABALIN
     Indication: MYELOPATHY
     Dosage: 75 MG, UNK
     Dates: end: 20190810
  4. NORCO [Concomitant]
     Active Substance: ACETAMINOPHEN\HYDROCODONE BITARTRATE
     Dosage: UNK, (10/325 4 TIMES A DAY)

REACTIONS (2)
  - Drug ineffective [Not Recovered/Not Resolved]
  - Myelopathy [Not Recovered/Not Resolved]

NARRATIVE: CASE EVENT DATE: 2007
